FAERS Safety Report 9456894 (Version 1)
Quarter: 2013Q3

REPORT INFORMATION
  Report Type: Spontaneous
  Country: US (occurrence: None)
  Receive Date: 20130809
  Receipt Date: 20130809
  Transmission Date: 20140515
  Serious: No
  Sender: FDA-Public Use
  Company Number: 001584777A

PATIENT
  Age: 62 Year
  Sex: Female

DRUGS (2)
  1. SUPERSMILE [Suspect]
     Dosage: 2 WEEKS, ORAL APPLICATION
     Route: 048
  2. LIPITOR [Concomitant]

REACTIONS (2)
  - Hypersensitivity [None]
  - Angioedema [None]
